FAERS Safety Report 22133071 (Version 1)
Quarter: 2023Q1

REPORT INFORMATION
  Report Type: Report from Study
  Country: US (occurrence: US)
  Receive Date: 20230324
  Receipt Date: 20230324
  Transmission Date: 20230418
  Serious: No
  Sender: FDA-Public Use
  Company Number: US-ACADIA PHARMACEUTICALS INC.-ACA-2023-PIM-000857

PATIENT
  Age: 77 Year
  Sex: Male

DRUGS (7)
  1. NUPLAZID [Suspect]
     Active Substance: PIMAVANSERIN TARTRATE
     Indication: Hallucination, visual
     Dosage: 20 MILLIGRAM, QD
     Route: 048
     Dates: start: 20210727
  2. CITALOPRAM [Concomitant]
     Active Substance: CITALOPRAM HYDROBROMIDE
     Dosage: 20 MILLIGRAM
  3. DONEPEZIL [Concomitant]
     Active Substance: DONEPEZIL
     Dosage: 23 MILLIGRAM
  4. VITAMINS NOS [Concomitant]
     Active Substance: VITAMINS
  5. VITAMIN B12 [Concomitant]
     Active Substance: CYANOCOBALAMIN
     Dosage: 100 MICROGRAM
  6. MINERALS\VITAMINS [Concomitant]
     Active Substance: MINERALS\VITAMINS
  7. SILODOSIN [Concomitant]
     Active Substance: SILODOSIN
     Dosage: 4 MILLIGRAM

REACTIONS (8)
  - Hypersomnia [Recovered/Resolved]
  - Incorrect dose administered [Not Recovered/Not Resolved]
  - Head injury [Recovered/Resolved]
  - Abnormal behaviour [Recovered/Resolved]
  - Agitation [Recovered/Resolved]
  - Hallucination [Recovered/Resolved]
  - Fall [Recovered/Resolved]
  - Off label use [Not Recovered/Not Resolved]

NARRATIVE: CASE EVENT DATE: 20210721
